FAERS Safety Report 23713628 (Version 1)
Quarter: 2024Q2

REPORT INFORMATION
  Report Type: Spontaneous
  Country: CN (occurrence: CN)
  Receive Date: 20240405
  Receipt Date: 20240405
  Transmission Date: 20240716
  Serious: Yes (Hospitalization)
  Sender: FDA-Public Use
  Company Number: CN-Eisai-EC-2024-162677

PATIENT
  Age: 77 Year
  Sex: Male
  Weight: 63.5 kg

DRUGS (1)
  1. LENVATINIB [Suspect]
     Active Substance: LENVATINIB
     Indication: Hepatic cancer
     Route: 048
     Dates: start: 20230807, end: 20231107

REACTIONS (2)
  - Back pain [Recovering/Resolving]
  - Glomerular vascular disorder [Recovering/Resolving]

NARRATIVE: CASE EVENT DATE: 20231108
